FAERS Safety Report 12596544 (Version 3)
Quarter: 2016Q3

REPORT INFORMATION
  Report Type: Spontaneous
  Country: IT (occurrence: IT)
  Receive Date: 20160727
  Receipt Date: 20160914
  Transmission Date: 20161109
  Serious: Yes (Other)
  Sender: FDA-Public Use
  Company Number: IT-ROCHE-1802331

PATIENT
  Age: 58 Year
  Sex: Male

DRUGS (5)
  1. VIEKIRAX [Suspect]
     Active Substance: OMBITASVIR\PARITAPREVIR\RITONAVIR
     Indication: HEPATITIS C
     Route: 048
     Dates: start: 20151014, end: 20160404
  2. LASIX [Concomitant]
     Active Substance: FUROSEMIDE
     Route: 048
  3. PANTOPRAZOLE [Concomitant]
     Active Substance: PANTOPRAZOLE SODIUM
     Route: 048
  4. COPEGUS [Suspect]
     Active Substance: RIBAVIRIN
     Indication: HEPATITIS C
     Route: 048
     Dates: start: 20151014, end: 20160404
  5. LAEVOLAC [Concomitant]
     Active Substance: LACTULOSE
     Route: 048

REACTIONS (2)
  - Drug ineffective [Unknown]
  - Hepatitis C RNA [Not Recovered/Not Resolved]

NARRATIVE: CASE EVENT DATE: 20160404
